FAERS Safety Report 9798154 (Version 1)
Quarter: 2014Q1

REPORT INFORMATION
  Report Type: Spontaneous
  Country: US (occurrence: None)
  Receive Date: 20140102
  Receipt Date: 20140102
  Transmission Date: 20141002
  Serious: Yes (Hospitalization)
  Sender: FDA-Public Use
  Company Number: None

PATIENT
  Age: 65 Year
  Sex: Male

DRUGS (1)
  1. ZELBORAF 240MG GENENTECH [Suspect]
     Indication: MALIGNANT MELANOMA
     Dosage: 3 TABLETS, BID, ORAL
     Route: 048
     Dates: start: 20130228, end: 20131226

REACTIONS (1)
  - Ulcer haemorrhage [None]
